FAERS Safety Report 14335207 (Version 3)
Quarter: 2020Q2

REPORT INFORMATION
  Report Type: Spontaneous
  Country: US (occurrence: US)
  Receive Date: 20171229
  Receipt Date: 20200624
  Transmission Date: 20200713
  Serious: No
  Sender: FDA-Public Use
  Company Number: US-BIOGEN-2017BI00501573

PATIENT
  Sex: Male

DRUGS (1)
  1. PLEGRIDY [Suspect]
     Active Substance: PEGINTERFERON BETA-1A
     Indication: MULTIPLE SCLEROSIS
     Route: 050

REACTIONS (7)
  - Injection site erythema [Unknown]
  - Chills [Unknown]
  - Pollakiuria [Unknown]
  - Mobility decreased [Unknown]
  - Headache [Unknown]
  - Influenza like illness [Unknown]
  - Arthralgia [Unknown]
